FAERS Safety Report 11705265 (Version 2)
Quarter: 2015Q4

REPORT INFORMATION
  Report Type: Spontaneous
  Country: US (occurrence: US)
  Receive Date: 20151106
  Receipt Date: 20151120
  Transmission Date: 20160304
  Serious: Yes (Hospitalization, Other)
  Sender: FDA-Public Use
  Company Number: US-BEH-2015055357

PATIENT
  Sex: Female

DRUGS (1)
  1. HIZENTRA [Suspect]
     Active Substance: HUMAN IMMUNOGLOBULIN G
     Indication: PRODUCT USED FOR UNKNOWN INDICATION
     Dosage: ??-???-2010

REACTIONS (14)
  - Arthropod sting [Unknown]
  - Mood swings [Unknown]
  - Tenodesis [Unknown]
  - Mammogram abnormal [Unknown]
  - Pain [Unknown]
  - Ear swelling [Unknown]
  - External ear cellulitis [Unknown]
  - Overdose [Unknown]
  - Pneumonia [Unknown]
  - Mastectomy [Unknown]
  - Gastrointestinal haemorrhage [Unknown]
  - Treatment noncompliance [Unknown]
  - Haemorrhage [Unknown]
  - Shoulder arthroplasty [Unknown]

NARRATIVE: CASE EVENT DATE: 201412
